FAERS Safety Report 7755310-7 (Version None)
Quarter: 2011Q3

REPORT INFORMATION
  Report Type: 
  Country: None (occurrence: None)
  Receive Date: 20110916
  Receipt Date: 20110906
  Transmission Date: 20111222
  Serious: Yes (Hospitalization)
  Sender: FDA-Public Use
  Company Number: JP-SHIRE-SPV1-2010-01551

PATIENT
  Sex: Female

DRUGS (19)
  1. OXAROL [Concomitant]
     Dosage: 5 ?G, UNKNOWN
     Route: 042
     Dates: start: 20110101, end: 20110409
  2. LAC B [Concomitant]
     Indication: PRODUCT USED FOR UNKNOWN INDICATION
     Dosage: 2 G, UNKNOWN
     Route: 048
     Dates: start: 20030218
  3. MUCOSTA [Concomitant]
     Indication: PRODUCT USED FOR UNKNOWN INDICATION
     Dosage: 300 MG, UNKNOWN
     Route: 048
     Dates: start: 20030218
  4. FULSTAN [Concomitant]
     Indication: PRODUCT USED FOR UNKNOWN INDICATION
     Dosage: 0.15 ?G, UNKNOWN
     Route: 048
     Dates: start: 20110414
  5. CALCIUM CARBONATE [Concomitant]
     Indication: HYPERPHOSPHATAEMIA
     Dosage: 4500 MG, UNKNOWN
     Route: 048
     Dates: start: 20090718, end: 20090817
  6. OXAROL [Concomitant]
     Indication: PRODUCT USED FOR UNKNOWN INDICATION
     Dosage: 5 UG, UNKNOWN
     Route: 042
     Dates: start: 20040720, end: 20100803
  7. OXAROL [Concomitant]
     Dosage: 10 ?G, UNKNOWN
     Route: 042
     Dates: start: 20101002, end: 20101230
  8. MICARDIS [Concomitant]
     Indication: PRODUCT USED FOR UNKNOWN INDICATION
     Dosage: 40 MG, UNKNOWN
     Route: 048
     Dates: start: 20090912
  9. RISUMIC [Concomitant]
     Indication: PROCEDURAL HYPOTENSION
     Dosage: 10 MG, UNKNOWN
     Route: 048
  10. CALCIUM CARBONATE [Concomitant]
     Dosage: 3000 MG, UNKNOWN
     Route: 048
     Dates: start: 20090818, end: 20091007
  11. METHYCOBAL [Concomitant]
     Indication: PRODUCT USED FOR UNKNOWN INDICATION
     Dosage: 1500 UG, UNKNOWN
     Route: 048
     Dates: start: 20060810
  12. LANTHANUM CARBONATE [Suspect]
     Indication: HYPERPHOSPHATAEMIA
     Dosage: 750 MG, UNKNOWN (IMMEDIATELY AFTER MEALS)
     Route: 048
     Dates: start: 20090718
  13. OXAROL [Concomitant]
     Dosage: 2.5 ?G, UNKNOWN
     Route: 042
     Dates: start: 20100805, end: 20100930
  14. NIZATIDINE [Concomitant]
     Indication: PRODUCT USED FOR UNKNOWN INDICATION
     Dosage: 150 MG, UNKNOWN
     Route: 048
     Dates: start: 20030218
  15. PLETAL [Concomitant]
     Indication: PRODUCT USED FOR UNKNOWN INDICATION
     Dosage: 200 MG, UNKNOWN
     Route: 048
     Dates: start: 20030218
  16. CALCIUM CARBONATE [Concomitant]
     Dosage: 1500 MG, UNKNOWN
     Route: 048
     Dates: start: 20091008
  17. ALLOPURINOL [Concomitant]
     Indication: PRODUCT USED FOR UNKNOWN INDICATION
     Dosage: 100 MG, UNKNOWN
     Route: 048
     Dates: start: 20080426
  18. SEVELAMER HYDROCHLORIDE [Concomitant]
     Indication: HYPERPHOSPHATAEMIA
     Dosage: 1500 MG, UNKNOWN
     Route: 048
     Dates: start: 20101009, end: 20110115
  19. CINACALCET HYDROCHLORIDE [Concomitant]
     Indication: HYPERPARATHYROIDISM SECONDARY
     Dosage: 25 MG, UNKNOWN
     Route: 048
     Dates: start: 20101218

REACTIONS (16)
  - INSOMNIA [None]
  - EYE PRURITUS [None]
  - COUGH [None]
  - PAIN [None]
  - DIARRHOEA [None]
  - CERVICOBRACHIAL SYNDROME [None]
  - BACK PAIN [None]
  - NECK PAIN [None]
  - NASOPHARYNGITIS [None]
  - PRODUCTIVE COUGH [None]
  - HYPERPARATHYROIDISM SECONDARY [None]
  - ABDOMINAL PAIN UPPER [None]
  - ATRIAL FIBRILLATION [None]
  - INFECTIOUS PERITONITIS [None]
  - HYPERTENSION [None]
  - CONSTIPATION [None]
